FAERS Safety Report 11890561 (Version 1)
Quarter: 2016Q1

REPORT INFORMATION
  Report Type: Other
  Country: FR (occurrence: FR)
  Receive Date: 20160105
  Receipt Date: 20160105
  Transmission Date: 20160526
  Serious: Yes (Hospitalization)
  Sender: FDA-Public Use
  Company Number: FR-MYLANLABS-2015M1047328

PATIENT

DRUGS (8)
  1. BISOCE 5 MG, COMPRIM? PELLICUL? S?CABLE [Suspect]
     Active Substance: BISOPROLOL
     Indication: ATRIAL FIBRILLATION
     Dosage: 1 DF, QD
     Route: 048
     Dates: start: 20151116, end: 20151125
  2. VICTOZA [Concomitant]
     Active Substance: LIRAGLUTIDE
     Indication: PRODUCT USED FOR UNKNOWN INDICATION
  3. DIAMICRON [Concomitant]
     Active Substance: GLICLAZIDE
     Indication: PRODUCT USED FOR UNKNOWN INDICATION
  4. ELIQUIS [Suspect]
     Active Substance: APIXABAN
     Indication: ATRIAL FIBRILLATION
     Dosage: 2 DF, QD
     Route: 048
     Dates: start: 20151116, end: 20151125
  5. LEVEMIR [Concomitant]
     Active Substance: INSULIN DETEMIR
     Indication: PRODUCT USED FOR UNKNOWN INDICATION
  6. STAGID [Concomitant]
     Active Substance: METFORMIN PAMOATE
     Indication: PRODUCT USED FOR UNKNOWN INDICATION
  7. MODURETIC 5-50 [Suspect]
     Active Substance: AMILORIDE HYDROCHLORIDE\HYDROCHLOROTHIAZIDE
     Indication: ATRIAL FIBRILLATION
     Dosage: 1 DF, QD
     Route: 048
     Dates: start: 20151116, end: 20151128
  8. MONO TILDIEM [Suspect]
     Active Substance: DILTIAZEM HYDROCHLORIDE
     Indication: ATRIAL FIBRILLATION
     Dosage: 1 DF, QD
     Route: 048
     Dates: start: 20151116, end: 20151123

REACTIONS (1)
  - Acute generalised exanthematous pustulosis [Recovering/Resolving]

NARRATIVE: CASE EVENT DATE: 20151119
